FAERS Safety Report 21037660 (Version 1)
Quarter: 2022Q3

REPORT INFORMATION
  Report Type: Report from Study
  Country: US (occurrence: US)
  Receive Date: 20220704
  Receipt Date: 20220704
  Transmission Date: 20221027
  Serious: Yes (Life-Threatening, Hospitalization, Other)
  Sender: FDA-Public Use
  Company Number: US-CELGENE-USA-20210800566

PATIENT
  Age: 74 Year
  Sex: Male
  Weight: 90 kg

DRUGS (26)
  1. AZACITIDINE [Suspect]
     Active Substance: AZACITIDINE
     Indication: Myelodysplastic syndrome
     Dosage: DAYS 1-7 ( DAYS WITHIN THE FIRST 9 CALENDAR DAYS OF EACH 28-DAY CYCLE)
     Route: 058
     Dates: start: 20210630, end: 20210708
  2. VENETOCLAX [Suspect]
     Active Substance: VENETOCLAX
     Indication: Myelodysplastic syndrome
     Dosage: 400 MILLIGRAM
     Route: 048
     Dates: start: 20210630, end: 20210714
  3. METFORMIN [Concomitant]
     Active Substance: METFORMIN HYDROCHLORIDE
     Indication: Type 2 diabetes mellitus
     Dosage: FREQUENCY TEXT: NOT PROVIDED
     Route: 048
  4. NITROGLYCERIN [Concomitant]
     Active Substance: NITROGLYCERIN
     Indication: Coronary artery disease
     Dosage: 1 AS REQUIRED
     Route: 060
     Dates: start: 2008
  5. METOPROLOL TARTRATE [Concomitant]
     Active Substance: METOPROLOL TARTRATE
     Indication: Hypertension
     Dosage: 100 MILLIGRAM
     Route: 048
     Dates: start: 2016
  6. METOPROLOL TARTRATE [Concomitant]
     Active Substance: METOPROLOL TARTRATE
     Indication: Sinus tachycardia
     Route: 048
     Dates: start: 20210721, end: 20210721
  7. METOPROLOL TARTRATE [Concomitant]
     Active Substance: METOPROLOL TARTRATE
     Route: 042
     Dates: start: 20210722, end: 20210722
  8. ASCORBIC ACID [Concomitant]
     Active Substance: ASCORBIC ACID
     Indication: Nutritional supplementation
     Route: 048
     Dates: start: 2016
  9. LISINOPRIL [Concomitant]
     Active Substance: LISINOPRIL
     Indication: Hypertension
     Dosage: 40 MILLIGRAM
     Route: 048
     Dates: start: 2016
  10. SEMAGLUTIDE [Concomitant]
     Active Substance: SEMAGLUTIDE
     Indication: Type 2 diabetes mellitus
     Dosage: 7 MILLIGRAM
     Route: 048
     Dates: start: 20210501
  11. CHOLECALCIFEROL [Concomitant]
     Active Substance: CHOLECALCIFEROL
     Indication: Vitamin supplementation
     Dosage: 4000 IU (INTERNATIONAL UNIT)
     Route: 048
     Dates: start: 2017
  12. ATORVASTATIN [Concomitant]
     Active Substance: ATORVASTATIN
     Indication: Hypercholesterolaemia
     Dosage: 40 MILLIGRAM
     Route: 048
     Dates: start: 2016
  13. OMEPRAZOLE [Concomitant]
     Active Substance: OMEPRAZOLE
     Indication: Gastrooesophageal reflux disease
     Dosage: 80 MILLIGRAM
     Route: 048
     Dates: start: 2016
  14. ALLOPURINOL [Concomitant]
     Active Substance: ALLOPURINOL
     Indication: Prophylaxis
     Dosage: 300 MILLIGRAM
     Route: 048
     Dates: start: 20210630
  15. ALLOPURINOL [Concomitant]
     Active Substance: ALLOPURINOL
     Dosage: 1 IN 1 D
     Route: 048
  16. ASPIRIN [Concomitant]
     Active Substance: ASPIRIN
     Indication: Headache
     Dosage: FREQUENCY TEXT: NOT PROVIDED
     Route: 048
     Dates: start: 20210620, end: 20210620
  17. ACETAMINOPHEN [Concomitant]
     Active Substance: ACETAMINOPHEN
     Indication: Headache
     Dosage: 1 IN 6 HR
     Route: 048
     Dates: start: 20210722
  18. ACETAMINOPHEN [Concomitant]
     Active Substance: ACETAMINOPHEN
     Indication: Pain
     Dosage: 1 ONCE
     Dates: start: 20210722, end: 20210722
  19. INSULIN ASPART [Concomitant]
     Active Substance: INSULIN ASPART
     Indication: Diabetes mellitus
     Dosage: 1 AS REQUIRED-2UNIT
     Route: 058
     Dates: start: 20210722
  20. IRON SUCROSE [Concomitant]
     Active Substance: IRON SUCROSE
     Indication: Anaemia
     Dosage: 1 IN 1 D
     Dates: start: 20210722, end: 20210724
  21. MELATONIN [Concomitant]
     Active Substance: MELATONIN
     Indication: Insomnia
     Dosage: 1 ONCE
     Route: 048
     Dates: start: 20210722, end: 20210722
  22. MELATONIN [Concomitant]
     Active Substance: MELATONIN
     Dosage: 1 IN 1 D
     Route: 048
     Dates: start: 20210723
  23. MORPHINE [Concomitant]
     Active Substance: MORPHINE
     Indication: Headache
     Route: 042
     Dates: start: 20210722, end: 20210722
  24. MORPHINE [Concomitant]
     Active Substance: MORPHINE
     Indication: Pain
  25. ONDANSETRON [Concomitant]
     Active Substance: ONDANSETRON
     Indication: Nausea
     Dosage: AS REQUIRED
     Route: 048
  26. ONDANSETRON [Concomitant]
     Active Substance: ONDANSETRON
     Indication: Infusion related reaction
     Dosage: AS REQUIRED
     Route: 042
     Dates: start: 20210630

REACTIONS (1)
  - Gastrointestinal haemorrhage [Recovered/Resolved]

NARRATIVE: CASE EVENT DATE: 20210721
